FAERS Safety Report 8327239-7 (Version None)
Quarter: 2012Q2

REPORT INFORMATION
  Report Type: 
  Country: None (occurrence: None)
  Receive Date: 20120501
  Receipt Date: 20120426
  Transmission Date: 20120825
  Serious: Yes (Other)
  Sender: FDA-Public Use
  Company Number: US-AMGEN-USASP2012011079

PATIENT
  Age: 62 Year
  Sex: Female
  Weight: 50.794 kg

DRUGS (3)
  1. FOSAMAX [Concomitant]
     Indication: PAIN IN JAW
  2. NAPROXEN (ALEVE) [Concomitant]
  3. PROLIA [Suspect]
     Indication: OSTEOPOROSIS POSTMENOPAUSAL
     Dosage: 60 MG, Q6MO
     Route: 058
     Dates: start: 20111027, end: 20111027

REACTIONS (4)
  - CHEST PAIN [None]
  - OSTEONECROSIS OF JAW [None]
  - MALAISE [None]
  - TOOTH ABSCESS [None]
